FAERS Safety Report 19603645 (Version 1)
Quarter: 2021Q3

REPORT INFORMATION
  Report Type: Spontaneous
  Country: IT (occurrence: IT)
  Receive Date: 20210724
  Receipt Date: 20210724
  Transmission Date: 20211014
  Serious: Yes (Other)
  Sender: FDA-Public Use
  Company Number: IT-ACCORD-232358

PATIENT
  Age: 59 Year
  Sex: Female

DRUGS (4)
  1. OXALIPLATIN. [Suspect]
     Active Substance: OXALIPLATIN
     Indication: RECTAL ADENOCARCINOMA
     Dosage: OXALIPLATIN 80 MG/M2 D8, 22 EVERY 28 DAYS, FOR 3 CYCLES
  2. BEVACIZUMAB. [Suspect]
     Active Substance: BEVACIZUMAB
     Indication: RECTAL ADENOCARCINOMA
     Dosage: BEVACIZUMAB 5 MG/KG D1, 15, EVERY 28 DAYS, FOR 3 CYCLES
  3. FLUOROURACIL. [Suspect]
     Active Substance: FLUOROURACIL
     Indication: RECTAL ADENOCARCINOMA
     Dosage: TIMED?FLAT?INFUSION FLUOROURACIL 900 MG/M2/D D1?2, 8?9, 15?16, 22?23, EVERY 28 DAYS, FOR 3 CYCLES
  4. IRINOTECAN [Suspect]
     Active Substance: IRINOTECAN
     Indication: RECTAL ADENOCARCINOMA
     Dosage: IRINOTECAN 160 MG/M2 D1, 15 EVERY 28 DAYS, FOR 3 CYCLES

REACTIONS (10)
  - Asthenia [Unknown]
  - Alopecia [Unknown]
  - Diarrhoea [Unknown]
  - Nausea [Unknown]
  - Mucosal inflammation [Unknown]
  - Pyrexia [Unknown]
  - Epistaxis [Unknown]
  - Rhinitis [Unknown]
  - Neuropathy peripheral [Unknown]
  - Constipation [Unknown]
